FAERS Safety Report 11212667 (Version 7)
Quarter: 2016Q4

REPORT INFORMATION
  Report Type: Report from Study
  Country: US (occurrence: US)
  Receive Date: 20150623
  Receipt Date: 20161227
  Transmission Date: 20170206
  Serious: Yes (Life-Threatening, Hospitalization, Other)
  Sender: FDA-Public Use
  Company Number: US-ALEXION-A201502124

PATIENT
  Sex: Female

DRUGS (1)
  1. SOLIRIS [Suspect]
     Active Substance: ECULIZUMAB
     Indication: HAEMOLYTIC URAEMIC SYNDROME
     Dosage: UNK
     Route: 042

REACTIONS (17)
  - Ovarian cancer recurrent [Not Recovered/Not Resolved]
  - Haptoglobin decreased [Not Recovered/Not Resolved]
  - Abdominal pain [Not Recovered/Not Resolved]
  - Haemoglobin decreased [Not Recovered/Not Resolved]
  - Benign spleen tumour [Unknown]
  - Fatigue [Recovered/Resolved]
  - Nasopharyngitis [Not Recovered/Not Resolved]
  - Splenic lesion [Not Recovered/Not Resolved]
  - Blood lactate dehydrogenase increased [Unknown]
  - Infection [Unknown]
  - Headache [Recovered/Resolved]
  - Intestinal obstruction [Unknown]
  - Haemolysis [Not Recovered/Not Resolved]
  - Blood creatinine increased [Unknown]
  - Tinnitus [Recovered/Resolved]
  - Fluid overload [Not Recovered/Not Resolved]
  - Abdominal pain [Unknown]

NARRATIVE: CASE EVENT DATE: 20150605
